FAERS Safety Report 11342077 (Version 1)
Quarter: 2015Q3

REPORT INFORMATION
  Report Type: Spontaneous
  Country: US (occurrence: US)
  Receive Date: 20150805
  Receipt Date: 20150805
  Transmission Date: 20151125
  Serious: No
  Sender: FDA-Public Use
  Company Number: US-BAYER-2015-393531

PATIENT
  Age: 72 Year
  Sex: Female
  Weight: 61.22 kg

DRUGS (2)
  1. ALEVE [Suspect]
     Active Substance: NAPROXEN SODIUM
     Indication: ARTHRALGIA
     Dosage: 1 DF, OM
     Route: 048
     Dates: start: 2013
  2. ALEVE [Suspect]
     Active Substance: NAPROXEN SODIUM
     Indication: ARTHRALGIA
     Dosage: 2 DF, BID
     Route: 048
     Dates: start: 2013, end: 2013

REACTIONS (2)
  - Off label use [Unknown]
  - Off label use [None]

NARRATIVE: CASE EVENT DATE: 2013
